FAERS Safety Report 23590717 (Version 1)
Quarter: 2024Q1

REPORT INFORMATION
  Report Type: Other
  Country: FR (occurrence: None)
  Receive Date: 20240304
  Receipt Date: 20240304
  Transmission Date: 20240410
  Serious: Yes (Other)
  Sender: FDA-Public Use
  Company Number: FR-ROCHE-3516818

PATIENT

DRUGS (3)
  1. RITUXIMAB [Suspect]
     Active Substance: RITUXIMAB
     Indication: Hairy cell leukaemia
     Dosage: FOR 8 WEEKS, FOLLOWED BY RITUXIMAB CONSOLIDATION (4 INJECTIONS EVERY 15 DAYS).
     Route: 065
  2. VEMURAFENIB [Suspect]
     Active Substance: VEMURAFENIB
     Indication: Hairy cell leukaemia
     Dosage: FOR 8 WEEKS
     Route: 065
  3. DABRAFENIB [Suspect]
     Active Substance: DABRAFENIB
     Indication: Hairy cell leukaemia
     Route: 065

REACTIONS (6)
  - Musculoskeletal toxicity [Unknown]
  - Hepatotoxicity [Unknown]
  - Haematotoxicity [Unknown]
  - Cardiotoxicity [Unknown]
  - Skin toxicity [Unknown]
  - Infection [Unknown]
